FAERS Safety Report 6036064-1 (Version None)
Quarter: 2009Q1

REPORT INFORMATION
  Report Type: 
  Country: None (occurrence: None)
  Receive Date: 20090113
  Receipt Date: 20090112
  Transmission Date: 20090719
  Serious: Yes (Death)
  Sender: FDA-Public Use
  Company Number: PR-PFIZER INC-2008101131

PATIENT
  Age: 63 Year
  Sex: Male

DRUGS (2)
  1. DETRUSITOL SR [Suspect]
     Dosage: 4 MG, 1X/DAY
  2. ANTIHYPERTENSIVES [Concomitant]

REACTIONS (1)
  - STEVENS-JOHNSON SYNDROME [None]
